FAERS Safety Report 7955032-3 (Version None)
Quarter: 2011Q4

REPORT INFORMATION
  Report Type: 
  Country: None (occurrence: None)
  Receive Date: 20111202
  Receipt Date: 20111125
  Transmission Date: 20120403
  Serious: Yes (Hospitalization)
  Sender: FDA-Public Use
  Company Number: FR-ABBOTT-11P-056-0877406-00

PATIENT
  Sex: Female

DRUGS (4)
  1. CYCLOSPORINE [Interacting]
     Indication: EYE DISORDER
     Route: 047
     Dates: start: 20080101
  2. CYCLOSPORINE [Interacting]
     Indication: SJOGREN'S SYNDROME
  3. TRUVADA [Interacting]
     Indication: HIV INFECTION
     Dosage: 200/245MG
     Dates: start: 20110101
  4. KALETRA [Suspect]
     Indication: HIV INFECTION
     Route: 048
     Dates: start: 20110101

REACTIONS (3)
  - RIB FRACTURE [None]
  - FOOT FRACTURE [None]
  - DRUG INTERACTION [None]
